FAERS Safety Report 6251200-X (Version None)
Quarter: 2009Q2

REPORT INFORMATION
  Report Type: 
  Country: None (occurrence: None)
  Receive Date: 20090626
  Receipt Date: 20090612
  Transmission Date: 20091009
  Serious: Yes (Hospitalization)
  Sender: FDA-Public Use
  Company Number: 2009001779

PATIENT
  Age: 62 Year
  Sex: Male

DRUGS (8)
  1. ERLOTINIB          (TABLET) [Suspect]
     Indication: PANCREATIC CARCINOMA METASTATIC
     Dosage: 150 MG, QD, ORAL
     Route: 048
     Dates: start: 20090101
  2. DOCETAXEL [Suspect]
     Indication: PANCREATIC CARCINOMA METASTATIC
     Dosage: 60 MG/M2, Q3W, INTRAVENOUS
     Route: 042
     Dates: start: 20081229, end: 20090525
  3. NEBIVOLOL HCL [Concomitant]
  4. AMILORIDE (AMILORIDE) [Concomitant]
  5. PROCORALAN [Concomitant]
  6. CIPRALEX [Concomitant]
  7. SPIRIVA [Concomitant]
  8. LORA-TABS (LORATADINE) [Concomitant]

REACTIONS (1)
  - HAEMOPTYSIS [None]
